FAERS Safety Report 19603655 (Version 1)
Quarter: 2021Q3

REPORT INFORMATION
  Report Type: Other
  Country: RU (occurrence: RU)
  Receive Date: 20210724
  Receipt Date: 20210724
  Transmission Date: 20211014
  Serious: Yes (Other)
  Sender: FDA-Public Use
  Company Number: RU-MACLEODS PHARMACEUTICALS US LTD-MAC2021031956

PATIENT

DRUGS (3)
  1. TIVICAY [Suspect]
     Active Substance: DOLUTEGRAVIR SODIUM
     Indication: HIV INFECTION
     Dosage: 50 MILLIGRAM, QD, ONE COURSE, PRIOR TO CONCEPTION, FIRST TRIMESTER
     Route: 048
     Dates: start: 20201020
  2. TENOFOVIR 300MG [Suspect]
     Active Substance: TENOFOVIR DISOPROXIL
     Indication: HIV INFECTION
     Dosage: 300 MILLIGRAM, QD, ONE COURSE, PRIOR TO CONCEPTION, FIRST TRIMESTER, TENOFOVIR DISOPROXIL FUMARATE
     Route: 048
     Dates: start: 20190607
  3. EPIVIR [Suspect]
     Active Substance: LAMIVUDINE
     Indication: HIV INFECTION
     Dosage: 300 MILLIGRAM, QD, ONE COURSE, PRIOR TO CONCEPTION, FIRST TRIMESTER
     Route: 048
     Dates: start: 20190607

REACTIONS (2)
  - Maternal exposure during pregnancy [Unknown]
  - Abortion spontaneous [Unknown]

NARRATIVE: CASE EVENT DATE: 20210328
